FAERS Safety Report 5545766-2 (Version None)
Quarter: 2007Q4

REPORT INFORMATION
  Report Type: 
  Country: None (occurrence: None)
  Receive Date: 20071207
  Receipt Date: 20071127
  Transmission Date: 20080405
  Serious: Yes (Hospitalization)
  Sender: FDA-Public Use
  Company Number: GXKR2007IE10199

PATIENT
  Age: 11 Year
  Sex: Female

DRUGS (2)
  1. CLONIDINE [Suspect]
     Indication: TOURETTE'S DISORDER
     Dosage: 25 UG, QID,
  2. RISPERIDONE [Suspect]
     Indication: TOURETTE'S DISORDER
     Dosage: 1 MG,QID

REACTIONS (5)
  - DYSARTHRIA [None]
  - GRIP STRENGTH DECREASED [None]
  - HEART RATE INCREASED [None]
  - MUSCULAR WEAKNESS [None]
  - TRANSIENT ISCHAEMIC ATTACK [None]
